FAERS Safety Report 5137552-2 (Version None)
Quarter: 2006Q4

REPORT INFORMATION
  Report Type: 
  Country: None (occurrence: None)
  Receive Date: 20061030
  Receipt Date: 20051118
  Transmission Date: 20070319
  Serious: No
  Sender: FDA-Public Use
  Company Number: US-GLAXOSMITHKLINE-A0582899A

PATIENT
  Age: 53 Year
  Sex: Female

DRUGS (7)
  1. ADVAIR HFA [Suspect]
     Indication: ASTHMA
     Route: 055
  2. BENZTROPINE MESYLATE [Concomitant]
  3. PREDNISONE TAB [Concomitant]
  4. TORSEMIDE [Concomitant]
  5. DEPAKOTE [Concomitant]
  6. RISPERDAL [Concomitant]
  7. OXYGEN [Concomitant]

REACTIONS (2)
  - DRUG INEFFECTIVE [None]
  - PHARMACEUTICAL PRODUCT COMPLAINT [None]
